FAERS Safety Report 5299310-8 (Version None)
Quarter: 2007Q2

REPORT INFORMATION
  Report Type: 
  Country: None (occurrence: None)
  Receive Date: 20070417
  Receipt Date: 20070413
  Transmission Date: 20071010
  Serious: Yes (Hospitalization)
  Sender: FDA-Public Use
  Company Number: 2007CG00417

PATIENT
  Age: 73 Year
  Sex: Female
  Weight: 78 kg

DRUGS (3)
  1. ATACAND [Suspect]
     Route: 048
     Dates: start: 20061004, end: 20061229
  2. TAREG [Suspect]
     Route: 048
     Dates: start: 20041015, end: 20061003
  3. MICARDIS [Suspect]
     Route: 048
     Dates: start: 20061230, end: 20070115

REACTIONS (1)
  - DERMATITIS PSORIASIFORM [None]
